FAERS Safety Report 7937160-1 (Version None)
Quarter: 2011Q4

REPORT INFORMATION
  Report Type: 
  Country: None (occurrence: None)
  Receive Date: 20111123
  Receipt Date: 20111116
  Transmission Date: 20120403
  Serious: Yes (Death, Hospitalization)
  Sender: FDA-Public Use
  Company Number: US-GLAXOSMITHKLINE-A0784652A

PATIENT
  Age: 62 Year
  Sex: Male
  Weight: 83.2 kg

DRUGS (5)
  1. DIABETA [Concomitant]
     Dates: start: 20010701, end: 20040901
  2. AVANDIA [Suspect]
     Indication: DIABETES MELLITUS
     Dosage: 4MG PER DAY
     Route: 048
     Dates: start: 20020601, end: 20050311
  3. NIACIN [Concomitant]
  4. GLYBURIDE [Concomitant]
  5. MECLIZINE [Concomitant]

REACTIONS (9)
  - DEATH [None]
  - MYOCARDIAL INFARCTION [None]
  - ARTERIOSCLEROSIS [None]
  - CARDIAC FAILURE CONGESTIVE [None]
  - PAIN [None]
  - MULTI-ORGAN FAILURE [None]
  - CORONARY ARTERY DISEASE [None]
  - CHEST PAIN [None]
  - CEREBROVASCULAR ACCIDENT [None]
